FAERS Safety Report 9321430 (Version 1)
Quarter: 2013Q2

REPORT INFORMATION
  Report Type: Spontaneous
  Country: US (occurrence: None)
  Receive Date: 20130531
  Receipt Date: 20130531
  Transmission Date: 20140414
  Serious: Yes (Death, Hospitalization)
  Sender: FDA-Public Use
  Company Number: None

PATIENT
  Age: 49 Year
  Sex: Male
  Weight: 114.3 kg

DRUGS (2)
  1. CARBOPLATIN [Suspect]
     Dates: end: 20130228
  2. PACLITAXEL (TAXOL) [Suspect]
     Dates: end: 20130228

REACTIONS (24)
  - Constipation [None]
  - Chills [None]
  - Nausea [None]
  - Renal failure acute [None]
  - Pulmonary embolism [None]
  - Pneumonia [None]
  - Acute respiratory distress syndrome [None]
  - Tachycardia [None]
  - Hypotension [None]
  - Streptococcal bacteraemia [None]
  - Lobar pneumonia [None]
  - Pulmonary hypertension [None]
  - Hypoxia [None]
  - Performance status decreased [None]
  - Abdominal pain [None]
  - Suicidal ideation [None]
  - Leukopenia [None]
  - Neutropenia [None]
  - Thrombocytopenia [None]
  - Pleural effusion [None]
  - Sepsis [None]
  - Malignant neoplasm progression [None]
  - Pancreatic carcinoma metastatic [None]
  - Dyspnoea [None]
